FAERS Safety Report 9236409 (Version 1)
Quarter: 2013Q2

REPORT INFORMATION
  Report Type: Spontaneous
  Country: DE (occurrence: FR)
  Receive Date: 20130417
  Receipt Date: 20130417
  Transmission Date: 20140414
  Serious: Yes (Hospitalization)
  Sender: FDA-Public Use
  Company Number: FR-FRI-1000044237

PATIENT
  Age: 76 Year
  Sex: Female

DRUGS (4)
  1. MEMANTINE [Suspect]
     Indication: DEMENTIA ALZHEIMER^S TYPE
     Dosage: 20 MG
     Route: 048
     Dates: start: 2012
  2. RISPERDAL [Suspect]
     Indication: AGGRESSION
     Dosage: 2.5 MG
     Route: 048
     Dates: start: 2012
  3. SERESTA [Suspect]
     Indication: ANXIETY
     Dosage: 10 MG
     Route: 048
     Dates: start: 2012
  4. PARACETAMOL [Concomitant]
     Dosage: 3 GRAMS

REACTIONS (3)
  - Somnolence [Recovering/Resolving]
  - Faecaloma [Recovered/Resolved]
  - Urinary retention [Recovered/Resolved]
